APPROVED DRUG PRODUCT: FURACIN
Active Ingredient: NITROFURAZONE
Strength: 0.2%
Dosage Form/Route: POWDER;TOPICAL
Application: A083791 | Product #001
Applicant: SHIRE DEVELOPMENT INC
Approved: Approved Prior to Jan 1, 1982 | RLD: No | RS: No | Type: DISCN